FAERS Safety Report 6364084-6 (Version None)
Quarter: 2009Q3

REPORT INFORMATION
  Report Type: 
  Country: None (occurrence: None)
  Receive Date: 20090919
  Receipt Date: 20090806
  Transmission Date: 20100115
  Serious: No
  Sender: FDA-Public Use
  Company Number: US-ABBOTT-09P-163-0584843-00

PATIENT
  Sex: Male
  Weight: 89.892 kg

DRUGS (6)
  1. HUMIRA [Suspect]
     Indication: PSORIASIS
     Dates: start: 20081201, end: 20090401
  2. HUMIRA [Suspect]
     Dates: start: 20090501, end: 20090710
  3. HUMIRA [Suspect]
  4. BP MEDS [Concomitant]
     Indication: HYPERTENSION
  5. PRILOSEC [Concomitant]
     Indication: DRUG USE FOR UNKNOWN INDICATION
  6. VITAMINS [Concomitant]
     Indication: DRUG USE FOR UNKNOWN INDICATION

REACTIONS (10)
  - ABDOMINAL MASS [None]
  - ARTHRALGIA [None]
  - DRUG INEFFECTIVE [None]
  - GAIT DISTURBANCE [None]
  - HYPOAESTHESIA [None]
  - INFECTED BITES [None]
  - PAIN IN EXTREMITY [None]
  - SKIN ATROPHY [None]
  - WOUND HAEMORRHAGE [None]
  - WOUND INFECTION [None]
